FAERS Safety Report 8688664 (Version 2)
Quarter: 2012Q4

REPORT INFORMATION
  Report Type: Report from Study
  Country: US (occurrence: US)
  Receive Date: 20120727
  Receipt Date: 20121210
  Transmission Date: 20130627
  Serious: Yes (Other)
  Sender: FDA-Public Use
  Company Number: US-ASTELLAS-2012US006334

PATIENT

DRUGS (5)
  1. TACROLIMUS OINTMENT [Suspect]
     Indication: PSORIASIS
     Dosage: UNK
     Route: 061
     Dates: start: 200512, end: 200804
  2. MOMETASONE [Concomitant]
     Indication: SKIN DISORDER
     Dosage: UNK
     Route: 065
  3. FLUOCINOLONE [Concomitant]
     Indication: PRODUCT USED FOR UNKNOWN INDICATION
     Dosage: 0.01 %, Unknown/D
     Route: 065
  4. TAZORAC [Concomitant]
     Indication: PRODUCT USED FOR UNKNOWN INDICATION
     Dosage: UNK
     Route: 065
  5. DOVONEX [Concomitant]
     Indication: PRODUCT USED FOR UNKNOWN INDICATION
     Dosage: UNK
     Route: 065

REACTIONS (1)
  - Lentigo [Not Recovered/Not Resolved]
